FAERS Safety Report 19074638 (Version 1)
Quarter: 2021Q1

REPORT INFORMATION
  Report Type: Spontaneous
  Country: US (occurrence: US)
  Receive Date: 20210330
  Receipt Date: 20210330
  Transmission Date: 20210420
  Serious: No
  Sender: FDA-Public Use
  Company Number: US-ROCHE-2688388

PATIENT
  Sex: Male

DRUGS (14)
  1. ACTOS [Concomitant]
     Active Substance: PIOGLITAZONE HYDROCHLORIDE
  2. FINASTERIDE. [Concomitant]
     Active Substance: FINASTERIDE
  3. CARVEDILOL. [Concomitant]
     Active Substance: CARVEDILOL
  4. ERIVEDGE [Suspect]
     Active Substance: VISMODEGIB
     Indication: BASAL CELL CARCINOMA
     Dosage: ONGOING: NO
     Route: 048
  5. FLOMAX [Concomitant]
     Active Substance: TAMSULOSIN HYDROCHLORIDE
  6. KLOR?CON [Concomitant]
     Active Substance: POTASSIUM CHLORIDE
  7. LASIX [Concomitant]
     Active Substance: FUROSEMIDE
  8. ZINC. [Concomitant]
     Active Substance: ZINC
  9. COENZYME Q10 [Concomitant]
     Active Substance: DIETARY SUPPLEMENT\UBIDECARENONE
  10. L?CARNITINE [Concomitant]
     Active Substance: LEVOCARNITINE
  11. AMIODARONE HCL [Concomitant]
     Active Substance: AMIODARONE HYDROCHLORIDE
  12. ELIQUIS [Concomitant]
     Active Substance: APIXABAN
  13. HYDRAZINE SULFATE [Concomitant]
     Active Substance: HYDRAZINE SULFATE
  14. LISINOPRIL. [Concomitant]
     Active Substance: LISINOPRIL

REACTIONS (2)
  - Anxiety [Not Recovered/Not Resolved]
  - Insomnia [Not Recovered/Not Resolved]
